FAERS Safety Report 15706401 (Version 1)
Quarter: 2018Q4

REPORT INFORMATION
  Report Type: Spontaneous
  Country: FR (occurrence: FR)
  Receive Date: 20181210
  Receipt Date: 20181210
  Transmission Date: 20190205
  Serious: Yes (Life-Threatening)
  Sender: FDA-Public Use
  Company Number: FR-PFM-2018-14265

PATIENT

DRUGS (4)
  1. VINORELBINE TARTRATE. [Suspect]
     Active Substance: VINORELBINE TARTRATE
     Dosage: 36 MG, CYCLICAL
     Route: 042
     Dates: start: 20181004, end: 20181004
  2. FLUOROURACILE [Suspect]
     Active Substance: FLUOROURACIL
     Indication: BREAST CANCER
     Dosage: 5 DAYS PER CYCLE ; CYCLICAL
     Route: 042
     Dates: start: 20181004, end: 20181008
  3. FLUOROURACIL TEVA [Suspect]
     Active Substance: FLUOROURACIL
     Indication: BREAST CANCER
     Dosage: 330 MG PER DAY, 5 CONSECUTIVE DAYS PER CYCLE
     Route: 042
     Dates: start: 20180913, end: 20180917
  4. VINORELBINE TARTRATE. [Suspect]
     Active Substance: VINORELBINE TARTRATE
     Indication: BREAST CANCER
     Dosage: J1-J8 ; CYCLICAL
     Route: 042
     Dates: start: 20180913, end: 20180920

REACTIONS (1)
  - Leukoencephalopathy [Recovering/Resolving]

NARRATIVE: CASE EVENT DATE: 20181012
